FAERS Safety Report 5241704-0 (Version None)
Quarter: 2007Q1

REPORT INFORMATION
  Report Type: 
  Country: None (occurrence: None)
  Receive Date: 20070220
  Receipt Date: 20070208
  Transmission Date: 20070707
  Serious: Yes (Disabling)
  Sender: FDA-Public Use
  Company Number: HQWYE284109FEB07

PATIENT
  Sex: Female

DRUGS (2)
  1. EFFEXOR XR [Suspect]
     Dosage: 150 MG (FREQUENCY UNSPECIFIED)
  2. EFFEXOR XR [Suspect]
     Dosage: 225 MG (FREQUENCY UNSPECIFIED)

REACTIONS (6)
  - AGGRESSION [None]
  - AGITATION [None]
  - CONDITION AGGRAVATED [None]
  - DEPRESSION [None]
  - HOSTILITY [None]
  - MOOD ALTERED [None]
